FAERS Safety Report 19717994 (Version 1)
Quarter: 2021Q3

REPORT INFORMATION
  Report Type: Spontaneous
  Country: NL (occurrence: NL)
  Receive Date: 20210818
  Receipt Date: 20210818
  Transmission Date: 20211014
  Serious: Yes (Hospitalization, Disabling)
  Sender: FDA-Public Use
  Company Number: NL-PFIZER INC-202101020400

PATIENT
  Age: 8 Decade
  Sex: Female

DRUGS (2)
  1. PALBOCICLIB [Suspect]
     Active Substance: PALBOCICLIB
     Dosage: 125 MG
     Dates: start: 20170504, end: 20210705
  2. FULVESTRANT. [Suspect]
     Active Substance: FULVESTRANT
     Dosage: 500 MG

REACTIONS (1)
  - Pathological fracture [Recovered/Resolved with Sequelae]

NARRATIVE: CASE EVENT DATE: 20210205
